FAERS Safety Report 8499448-8 (Version None)
Quarter: 2012Q2

REPORT INFORMATION
  Report Type: 
  Country: None (occurrence: None)
  Receive Date: 20120618
  Receipt Date: 20120607
  Transmission Date: 20120825
  Serious: Yes (Hospitalization)
  Sender: FDA-Public Use
  Company Number: 2012PROUSA01408

PATIENT
  Age: 68 Year
  Sex: Male
  Weight: 78.9 kg

DRUGS (1)
  1. PROVENGE [Suspect]
     Indication: PROSTATE CANCER METASTATIC
     Dosage: 250 ML, SINGLE, INTRAVENOUS
     Route: 042
     Dates: start: 20120426, end: 20120426

REACTIONS (6)
  - CONFUSIONAL STATE [None]
  - MUSCULAR WEAKNESS [None]
  - ASTHENIA [None]
  - CHILLS [None]
  - MALAISE [None]
  - CITRATE TOXICITY [None]
